FAERS Safety Report 26158319 (Version 2)
Quarter: 2025Q4

REPORT INFORMATION
  Report Type: Other
  Country: CN (occurrence: CN)
  Receive Date: 20251215
  Receipt Date: 20251217
  Transmission Date: 20260118
  Serious: Yes (Life-Threatening)
  Sender: INCYTE
  Company Number: CN-002147023-NVSC2025CN190586

PATIENT
  Age: 35 Year

DRUGS (3)
  1. RUXOLITINIB [Suspect]
     Active Substance: RUXOLITINIB
     Indication: Neoplasm prophylaxis
     Dosage: 5 MG, BIW
     Route: 061
  2. RUXOLITINIB [Suspect]
     Active Substance: RUXOLITINIB
     Indication: Graft versus host disease
  3. RUXOLITINIB [Suspect]
     Active Substance: RUXOLITINIB
     Indication: Acute myeloid leukaemia

REACTIONS (2)
  - Myelosuppression [Recovering/Resolving]
  - Off label use [Unknown]
